FAERS Safety Report 18131177 (Version 1)
Quarter: 2020Q3

REPORT INFORMATION
  Report Type: Spontaneous
  Country: US (occurrence: US)
  Receive Date: 20200810
  Receipt Date: 20200810
  Transmission Date: 20201103
  Serious: No
  Sender: FDA-Public Use
  Company Number: US-LEADINGPHARMA-US-2020LEASPO00122

PATIENT
  Age: 87 Year
  Sex: Female
  Weight: 160 kg

DRUGS (7)
  1. HYDROCHLOROTHIAZIDE. [Concomitant]
     Active Substance: HYDROCHLOROTHIAZIDE
     Indication: PRODUCT USED FOR UNKNOWN INDICATION
     Route: 065
  2. MELOXICAM. [Concomitant]
     Active Substance: MELOXICAM
     Indication: PRODUCT USED FOR UNKNOWN INDICATION
     Route: 065
  3. LORAZEPAM TABLETS USP [Suspect]
     Active Substance: LORAZEPAM
     Indication: ANXIETY
     Dosage: 01 PILL BEFORE BED
     Route: 048
     Dates: start: 20200702
  4. SYNTHROID [Concomitant]
     Active Substance: LEVOTHYROXINE SODIUM
     Indication: PRODUCT USED FOR UNKNOWN INDICATION
     Route: 065
  5. LORAZEPAM TABLETS USP [Suspect]
     Active Substance: LORAZEPAM
     Indication: INSOMNIA
     Route: 048
     Dates: end: 20200725
  6. LORAZEPAM TABLETS USP [Suspect]
     Active Substance: LORAZEPAM
     Route: 048
  7. VERAPAMIL [Concomitant]
     Active Substance: VERAPAMIL HYDROCHLORIDE
     Indication: PRODUCT USED FOR UNKNOWN INDICATION
     Route: 065

REACTIONS (6)
  - Vision blurred [Not Recovered/Not Resolved]
  - Product use in unapproved indication [Unknown]
  - Feeling abnormal [Not Recovered/Not Resolved]
  - Product substitution issue [Unknown]
  - Unevaluable event [Not Recovered/Not Resolved]
  - Wrong technique in product usage process [Unknown]

NARRATIVE: CASE EVENT DATE: 20200702
